FAERS Safety Report 11611013 (Version 10)
Quarter: 2021Q1

REPORT INFORMATION
  Report Type: Spontaneous
  Country: US (occurrence: US)
  Receive Date: 20151008
  Receipt Date: 20210218
  Transmission Date: 20210419
  Serious: Yes (Other)
  Sender: FDA-Public Use
  Company Number: US-PFIZER INC-2015332712

PATIENT
  Age: 73 Year
  Sex: Male
  Weight: 104 kg

DRUGS (13)
  1. LYRICA [Suspect]
     Active Substance: PREGABALIN
     Dosage: 100 MG, 2X/DAY
     Route: 048
  2. LISINOPRIL. [Concomitant]
     Active Substance: LISINOPRIL
     Indication: BLOOD DISORDER
  3. SIMVASTATIN. [Concomitant]
     Active Substance: SIMVASTATIN
     Indication: BLOOD CHOLESTEROL ABNORMAL
     Dosage: 10 MG, 1X/DAY
     Route: 048
     Dates: start: 201308
  4. METFORMIN [Concomitant]
     Active Substance: METFORMIN HYDROCHLORIDE
     Indication: GLUCOSE TOLERANCE IMPAIRED
     Dosage: 1000 MG, 1X/DAY
     Route: 048
     Dates: start: 201308
  5. OSTEO BI?FLEX EASE [Concomitant]
     Indication: ARTHRITIS
     Dosage: 100 MG, 2X/DAY (JOINT SHIELD 5?LOXIN)
     Route: 048
  6. LYRICA [Suspect]
     Active Substance: PREGABALIN
     Indication: HYPOAESTHESIA
     Dosage: UNK
  7. LYRICA [Suspect]
     Active Substance: PREGABALIN
     Dosage: 300 MG, 2X/DAY
     Route: 048
  8. ASPIRIN. [Concomitant]
     Active Substance: ASPIRIN
     Indication: CARDIAC DISORDER
     Dosage: 81 MG, DAILY
     Route: 048
  9. FUROSEMIDE. [Concomitant]
     Active Substance: FUROSEMIDE
     Indication: DIURETIC THERAPY
     Dosage: 20 MG, 1X/DAY
     Route: 048
     Dates: start: 201308
  10. ASPIRIN. [Concomitant]
     Active Substance: ASPIRIN
     Dosage: 2 DF, DAILY
     Route: 048
  11. LYRICA [Suspect]
     Active Substance: PREGABALIN
     Indication: DIABETIC NEUROPATHY
     Dosage: 300 MG, 2X/DAY (ONCE IN THE MORNING AND ONCE AT NIGHT)
     Route: 048
     Dates: start: 2014, end: 20181102
  12. LISINOPRIL. [Concomitant]
     Active Substance: LISINOPRIL
     Indication: RENAL DISORDER
     Dosage: 10 MG, 1X/DAY
     Route: 048
     Dates: start: 201308
  13. ASPIRIN. [Concomitant]
     Active Substance: ASPIRIN
     Dosage: 1 DF, DAILY
     Route: 048

REACTIONS (8)
  - Product selection error [Unknown]
  - Gait inability [Unknown]
  - Off label use [Unknown]
  - Burning sensation [Unknown]
  - Pain [Unknown]
  - Hypoacusis [Unknown]
  - Intentional product misuse [Unknown]
  - Pain in extremity [Not Recovered/Not Resolved]

NARRATIVE: CASE EVENT DATE: 201806
